FAERS Safety Report 20888076 (Version 1)
Quarter: 2022Q2

REPORT INFORMATION
  Report Type: Spontaneous
  Country: US (occurrence: US)
  Receive Date: 20220529
  Receipt Date: 20220529
  Transmission Date: 20220721
  Serious: Yes (Other)
  Sender: FDA-Public Use
  Company Number: US-BRISTOL-MYERS SQUIBB COMPANY-2022-044659

PATIENT
  Age: 89 Year
  Sex: Male

DRUGS (1)
  1. REVLIMID [Suspect]
     Active Substance: LENALIDOMIDE
     Indication: Plasmacytoma
     Dosage: FREQUENCY: DAILY FOR 14 DAYS ON AND 7 DAYS OFF.
     Route: 048
     Dates: start: 202203

REACTIONS (4)
  - Cerebrovascular accident [Unknown]
  - Fatigue [Unknown]
  - Insomnia [Unknown]
  - Intentional product use issue [Unknown]

NARRATIVE: CASE EVENT DATE: 20220512
